FAERS Safety Report 7903553-1 (Version None)
Quarter: 2011Q4

REPORT INFORMATION
  Report Type: 
  Country: None (occurrence: None)
  Receive Date: 20111109
  Receipt Date: 20111109
  Transmission Date: 20120403
  Serious: Yes (Hospitalization)
  Sender: FDA-Public Use
  Company Number: None

PATIENT
  Age: 35 Year
  Sex: Female

DRUGS (1)
  1. EVEROLIMUS [Suspect]
     Indication: LUNG TRANSPLANT
     Dosage: 0.75 MG
     Route: 048

REACTIONS (8)
  - LUNG INFILTRATION [None]
  - NO THERAPEUTIC RESPONSE [None]
  - BRONCHIECTASIS [None]
  - DYSPNOEA [None]
  - PYREXIA [None]
  - PNEUMONITIS [None]
  - LUNG CONSOLIDATION [None]
  - COMPUTERISED TOMOGRAM ABNORMAL [None]
